FAERS Safety Report 9521279 (Version 1)
Quarter: 2013Q3

REPORT INFORMATION
  Report Type: Spontaneous
  Country: US (occurrence: None)
  Receive Date: 20130911
  Receipt Date: 20130911
  Transmission Date: 20140515
  Serious: Yes (Other)
  Sender: FDA-Public Use
  Company Number: 001594667A

PATIENT
  Age: 44 Year
  Sex: Female

DRUGS (6)
  1. MEANINGFUL BEAUTY ANTIOXIDANT DAY CREME SPF 20 [Suspect]
     Dosage: ONCE DERMAL
     Dates: start: 20130427
  2. NEXIUM [Concomitant]
  3. EPIPEN [Concomitant]
  4. BENADRYL [Concomitant]
  5. ZYRTEC [Concomitant]
  6. PEPCID [Concomitant]

REACTIONS (1)
  - Throat tightness [None]
